FAERS Safety Report 4361608-5 (Version None)
Quarter: 2004Q2

REPORT INFORMATION
  Report Type: 
  Country: None (occurrence: None)
  Receive Date: 20040521
  Receipt Date: 20040409
  Transmission Date: 20050107
  Serious: No
  Sender: FDA-Public Use
  Company Number: US-GLAXOSMITHKLINE-A0506501A

PATIENT
  Age: 42 Year
  Sex: Female

DRUGS (6)
  1. WELLBUTRIN XL [Suspect]
     Indication: DEPRESSION
     Dosage: 300MG PER DAY
     Route: 048
     Dates: start: 20040326
  2. ZYPREXA [Concomitant]
  3. TOPAMAX [Concomitant]
  4. KLONOPIN [Concomitant]
  5. NEXIUM [Concomitant]
  6. PROZAC [Concomitant]

REACTIONS (1)
  - EYE DISORDER [None]
